FAERS Safety Report 19417462 (Version 1)
Quarter: 2021Q2

REPORT INFORMATION
  Report Type: Spontaneous
  Country: US (occurrence: US)
  Receive Date: 20210615
  Receipt Date: 20210615
  Transmission Date: 20210717
  Serious: No
  Sender: FDA-Public Use
  Company Number: US-ORGANON-O2106USA000992

PATIENT
  Age: 25 Year
  Sex: Female

DRUGS (3)
  1. NEXPLANON [Suspect]
     Active Substance: ETONOGESTREL
     Indication: CONTRACEPTION
     Dosage: 1 IMPLANT, UNDER SKIN IN LEFT ARM
     Route: 059
     Dates: start: 20210123
  2. COVID?19 VACCINE NOS. [Interacting]
     Active Substance: COVID-19 VACCINE NOS
     Dosage: UNK
  3. NEXPLANON [Interacting]
     Active Substance: ETONOGESTREL
     Indication: MENSTRUAL CYCLE MANAGEMENT

REACTIONS (3)
  - Product use in unapproved indication [Unknown]
  - Heavy menstrual bleeding [Not Recovered/Not Resolved]
  - Drug interaction [Not Recovered/Not Resolved]

NARRATIVE: CASE EVENT DATE: 2021
